FAERS Safety Report 5692736-X (Version None)
Quarter: 2008Q2

REPORT INFORMATION
  Report Type: 
  Country: None (occurrence: None)
  Receive Date: 20080401
  Receipt Date: 20080319
  Transmission Date: 20081010
  Serious: No
  Sender: FDA-Public Use
  Company Number: US023031

PATIENT
  Age: 45 Year
  Sex: Female
  Weight: 58.9676 kg

DRUGS (2)
  1. FENTORA [Suspect]
     Indication: MIGRAINE
     Dosage: 400 UG PRN BUCCAL
     Route: 002
     Dates: start: 20060901, end: 20061001
  2. METHADONE HCL [Concomitant]

REACTIONS (7)
  - ANXIETY [None]
  - DIZZINESS [None]
  - DRUG PRESCRIBING ERROR [None]
  - FEELING ABNORMAL [None]
  - MOUTH ULCERATION [None]
  - NAUSEA [None]
  - WRONG DRUG ADMINISTERED [None]
